FAERS Safety Report 9863500 (Version 2)
Quarter: 2014Q2

REPORT INFORMATION
  Report Type: Spontaneous
  Country: CO (occurrence: CO)
  Receive Date: 20140203
  Receipt Date: 20140410
  Transmission Date: 20141212
  Serious: No
  Sender: FDA-Public Use
  Company Number: CO-PFIZER INC-2014028241

PATIENT
  Age: 41 Year
  Sex: Male

DRUGS (1)
  1. SUTENT [Suspect]
     Indication: RENAL CANCER METASTATIC
     Dosage: 50 MG, 1X/DAY
     Route: 048
     Dates: start: 201301

REACTIONS (2)
  - Aphasia [Unknown]
  - Lip disorder [Not Recovered/Not Resolved]
